FAERS Safety Report 11995797 (Version 1)
Quarter: 2016Q1

REPORT INFORMATION
  Report Type: Spontaneous
  Country: US (occurrence: US)
  Receive Date: 20160203
  Receipt Date: 20160203
  Transmission Date: 20160526
  Serious: No
  Sender: FDA-Public Use
  Company Number: US-ASTRAZENECA-2016SE07868

PATIENT
  Age: 28302 Day
  Sex: Female
  Weight: 56.7 kg

DRUGS (7)
  1. DILTIAZEM [Concomitant]
     Active Substance: DILTIAZEM
     Route: 048
  2. DILAUDID [Concomitant]
     Active Substance: HYDROMORPHONE HYDROCHLORIDE
     Indication: PAIN
     Route: 062
     Dates: start: 20151225
  3. LEVOTHYROXINE. [Concomitant]
     Active Substance: LEVOTHYROXINE
     Route: 048
     Dates: start: 2015
  4. MOVANTIK [Suspect]
     Active Substance: NALOXEGOL OXALATE
     Indication: BOWEL MOVEMENT IRREGULARITY
     Dosage: HALF A PILL OF 25 MG=12.5 MG, DAILY
     Route: 048
  5. POTASSIUM [Concomitant]
     Active Substance: POTASSIUM
     Indication: CARDIAC DISORDER
     Route: 048
     Dates: start: 2015
  6. MOVANTIK [Suspect]
     Active Substance: NALOXEGOL OXALATE
     Indication: BOWEL MOVEMENT IRREGULARITY
     Route: 048
     Dates: start: 20160111
  7. ATIVAN [Concomitant]
     Active Substance: LORAZEPAM
     Indication: ANXIETY
     Route: 048
     Dates: start: 20160101

REACTIONS (3)
  - Intentional product misuse [Unknown]
  - Gastrointestinal hypomotility [Unknown]
  - Off label use [Unknown]

NARRATIVE: CASE EVENT DATE: 20160111
